FAERS Safety Report 9985906 (Version 2)
Quarter: 2014Q1

REPORT INFORMATION
  Report Type: Spontaneous
  Country: FR (occurrence: FR)
  Receive Date: 20140307
  Receipt Date: 20140319
  Transmission Date: 20141002
  Serious: Yes (Other)
  Sender: FDA-Public Use
  Company Number: FR-OTSUKA-US-2014-10439

PATIENT
  Sex: Female

DRUGS (12)
  1. BUSULFEX [Suspect]
     Indication: EWING^S SARCOMA
     Dosage: 6 MG/ML, UNK
     Route: 042
     Dates: start: 2008, end: 2008
  2. VINCRISTINE [Suspect]
     Indication: EWING^S SARCOMA
     Dosage: UNK
     Route: 042
     Dates: start: 2008, end: 2008
  3. IFOSFAMIDE [Suspect]
     Indication: EWING^S SARCOMA
     Dosage: UNK
     Route: 042
     Dates: start: 2008, end: 2008
  4. DOXORUBICINE [Suspect]
     Indication: EWING^S SARCOMA
     Dosage: UNK
     Route: 042
     Dates: start: 2008, end: 2008
  5. ETOPOSIDE [Suspect]
     Indication: EWING^S SARCOMA
     Dosage: UNK
     Route: 042
     Dates: start: 2008, end: 2008
  6. DACTINOMYCIN [Suspect]
     Indication: EWING^S SARCOMA
     Dosage: UNK
     Route: 042
     Dates: start: 2008, end: 2008
  7. ALKERAN [Suspect]
     Indication: EWING^S SARCOMA
     Dosage: UNK
     Route: 042
     Dates: start: 2008, end: 2008
  8. ENANTONE [Concomitant]
     Indication: PRODUCT USED FOR UNKNOWN INDICATION
     Dosage: 3 INJECTIONS
     Dates: start: 2007
  9. OESCLIM [Concomitant]
     Indication: PRODUCT USED FOR UNKNOWN INDICATION
     Dosage: UNK
     Dates: start: 2011, end: 201109
  10. ESTREVA [Concomitant]
     Indication: PRODUCT USED FOR UNKNOWN INDICATION
     Dosage: UNK
     Dates: start: 201109
  11. UVEDOSE [Concomitant]
     Indication: PRODUCT USED FOR UNKNOWN INDICATION
     Dosage: 100000 DF DOSAGE FORM (U), EVERY 2 MONTHS
  12. OROCAL [Concomitant]
     Indication: PRODUCT USED FOR UNKNOWN INDICATION
     Dosage: 500 MG MILLIGRAM(S), QD

REACTIONS (2)
  - Hypogonadism [Not Recovered/Not Resolved]
  - Delayed puberty [Not Recovered/Not Resolved]
